FAERS Safety Report 7824209-X (Version None)
Quarter: 2011Q4

REPORT INFORMATION
  Report Type: 
  Country: None (occurrence: None)
  Receive Date: 20111014
  Receipt Date: 20111006
  Transmission Date: 20120403
  Serious: Yes (Hospitalization, Other)
  Sender: FDA-Public Use
  Company Number: AUR-APL-2011-05370

PATIENT
  Age: 27 Year
  Sex: Female

DRUGS (7)
  1. FLUOXETINE [Concomitant]
  2. LANSOPRAZOLE [Concomitant]
  3. METFORMIN HCL [Suspect]
     Indication: PRODUCT USED FOR UNKNOWN INDICATION
     Dates: start: 20110409
  4. DIAZEPAM [Suspect]
     Indication: PRODUCT USED FOR UNKNOWN INDICATION
     Dates: start: 20110409
  5. CLOZARIL [Suspect]
     Indication: SCHIZOPHRENIA
     Dosage: ORAL
     Route: 048
     Dates: start: 20100106, end: 20110601
  6. VALPROATE SODIUM [Concomitant]
  7. TRIHEXYPHENIDYL HCL [Concomitant]

REACTIONS (4)
  - OVERDOSE [None]
  - WEIGHT INCREASED [None]
  - MOOD ALTERED [None]
  - NEUTROPENIA [None]
